FAERS Safety Report 8336283-5 (Version None)
Quarter: 2012Q2

REPORT INFORMATION
  Report Type: 
  Country: None (occurrence: None)
  Receive Date: 20120504
  Receipt Date: 20120426
  Transmission Date: 20120825
  Serious: No
  Sender: FDA-Public Use
  Company Number: US-BAYER-2012-037444

PATIENT

DRUGS (2)
  1. MAGNEVIST [Suspect]
     Dosage: 20 ML
  2. MAGNEVIST [Suspect]
     Dosage: 15 ML

REACTIONS (4)
  - DYSPNOEA [None]
  - URTICARIA [None]
  - CHEST DISCOMFORT [None]
  - DRY MOUTH [None]
